FAERS Safety Report 10190940 (Version 4)
Quarter: 2014Q3

REPORT INFORMATION
  Report Type: Spontaneous
  Country: IT (occurrence: IT)
  Receive Date: 20140523
  Receipt Date: 20140806
  Transmission Date: 20150326
  Serious: Yes (Other)
  Sender: FDA-Public Use
  Company Number: IT-009507513-1405ITA010385

PATIENT
  Age: 65 Year
  Sex: Female

DRUGS (5)
  1. SIMVASTATINA DOC [Suspect]
     Active Substance: SIMVASTATIN
     Indication: DYSLIPIDAEMIA
  2. PRAVASTATIN SODIUM. [Suspect]
     Active Substance: PRAVASTATIN SODIUM
     Indication: HYPERCHOLESTEROLAEMIA
     Dosage: TOTAL DAILY DOSE 40 MG
     Route: 048
     Dates: start: 20140221, end: 2014
  3. SIMVASTATINA DOC [Suspect]
     Active Substance: SIMVASTATIN
     Indication: HYPERCHOLESTEROLAEMIA
     Dosage: TOTAL DAILY DOSE 20MG
     Route: 048
     Dates: start: 20131101, end: 20140220
  4. THERAPY UNSPECIFIED [Suspect]
     Active Substance: UNSPECIFIED INGREDIENT
     Dosage: UNK
  5. PRAVASTATIN SODIUM. [Suspect]
     Active Substance: PRAVASTATIN SODIUM
     Indication: DYSLIPIDAEMIA
     Dosage: TOTAL DAILY DOSE 40 MG
     Route: 048
     Dates: start: 2014, end: 20140322

REACTIONS (9)
  - Dyspnoea [Recovering/Resolving]
  - Anxiety [Recovering/Resolving]
  - Anxiety [Recovering/Resolving]
  - Dyspnoea [Recovering/Resolving]
  - Anxiety [Unknown]
  - Tachyarrhythmia [Unknown]
  - Tachyarrhythmia [Recovering/Resolving]
  - Tachyarrhythmia [Recovering/Resolving]
  - Dyspnoea [Unknown]

NARRATIVE: CASE EVENT DATE: 20131201
